FAERS Safety Report 6784577-7 (Version None)
Quarter: 2010Q2

REPORT INFORMATION
  Report Type: 
  Country: None (occurrence: None)
  Receive Date: 20100622
  Receipt Date: 20100616
  Transmission Date: 20101027
  Serious: Yes (Hospitalization)
  Sender: FDA-Public Use
  Company Number: A0810650A

PATIENT
  Age: 70 Year
  Sex: Female
  Weight: 89.5 kg

DRUGS (10)
  1. AVANDIA [Suspect]
     Indication: DIABETES MELLITUS
     Dosage: 4MG PER DAY
     Route: 048
     Dates: start: 19990825, end: 20060917
  2. AVANDAMET [Suspect]
     Indication: DIABETES MELLITUS
     Route: 048
  3. GLUCOTROL [Concomitant]
  4. GLUCOPHAGE [Concomitant]
  5. LEVOXYL [Concomitant]
  6. ATENOLOL [Concomitant]
  7. DYAZIDE [Concomitant]
  8. FOSAMAX [Concomitant]
  9. VYTORIN [Concomitant]
  10. GEMFIBROZIL [Concomitant]

REACTIONS (5)
  - ACUTE CORONARY SYNDROME [None]
  - CARDIAC DISORDER [None]
  - CARDIAC FAILURE CONGESTIVE [None]
  - DEPRESSION [None]
  - MYOCARDIAL INFARCTION [None]
